APPROVED DRUG PRODUCT: STIMATE
Active Ingredient: DESMOPRESSIN ACETATE
Strength: 0.15MG/SPRAY
Dosage Form/Route: SPRAY, METERED;NASAL
Application: N020355 | Product #001
Applicant: FERRING PHARMACEUTICALS INC
Approved: Mar 7, 1994 | RLD: No | RS: No | Type: DISCN